FAERS Safety Report 14674703 (Version 8)
Quarter: 2019Q1

REPORT INFORMATION
  Report Type: Spontaneous
  Country: CA (occurrence: CA)
  Receive Date: 20180323
  Receipt Date: 20190115
  Transmission Date: 20190417
  Serious: Yes (Other)
  Sender: FDA-Public Use
  Company Number: CA-CELLTRION INC.-2018CA018126

PATIENT

DRUGS (8)
  1. INFLECTRA [Suspect]
     Active Substance: INFLIXIMAB-DYYB
     Dosage: 300 MG, EVERY 0, 2, 6 THEN EVERY 8 WEEKS
     Route: 042
     Dates: start: 20180301
  2. INFLECTRA [Suspect]
     Active Substance: INFLIXIMAB-DYYB
     Dosage: 500 MG, EVERY 8 WEEKS
     Route: 042
     Dates: start: 20180802
  3. INFLECTRA [Suspect]
     Active Substance: INFLIXIMAB-DYYB
     Dosage: 500 MG, EVERY 8 WEEKS
     Route: 042
     Dates: start: 20181122, end: 20181122
  4. TYLENOL [Concomitant]
     Active Substance: ACETAMINOPHEN
     Dosage: UNK
     Route: 065
  5. INFLECTRA [Suspect]
     Active Substance: INFLIXIMAB-DYYB
     Indication: RHEUMATOID ARTHRITIS
     Dosage: UNK, AT WEEK 0, 2, 6 AND THEN EVERY 2 WEEKS
     Route: 065
  6. AZATHIOPRINE. [Concomitant]
     Active Substance: AZATHIOPRINE
     Dosage: UNK
     Route: 065
  7. INFLECTRA [Suspect]
     Active Substance: INFLIXIMAB-DYYB
     Dosage: 300 MG, EVERY 0, 2 6 THEN EVERY 8 WEEKS
     Route: 042
     Dates: end: 20180607
  8. PREDNISONE. [Concomitant]
     Active Substance: PREDNISONE
     Dosage: 30 MG, DAILY

REACTIONS (12)
  - Urticaria [Not Recovered/Not Resolved]
  - Nasal congestion [Not Recovered/Not Resolved]
  - Migraine [Recovering/Resolving]
  - Dyspnoea [Recovering/Resolving]
  - Drug hypersensitivity [Unknown]
  - Product use issue [Unknown]
  - Lower respiratory tract infection [Unknown]
  - Drug ineffective [Not Recovered/Not Resolved]
  - Peripheral swelling [Not Recovered/Not Resolved]
  - Chest discomfort [Not Recovered/Not Resolved]
  - Pulmonary congestion [Unknown]
  - Wheezing [Unknown]

NARRATIVE: CASE EVENT DATE: 20180301
